FAERS Safety Report 12134011 (Version 1)
Quarter: 2016Q1

REPORT INFORMATION
  Report Type: Spontaneous
  Country: US (occurrence: US)
  Receive Date: 20160301
  Receipt Date: 20160301
  Transmission Date: 20160526
  Serious: No
  Sender: FDA-Public Use
  Company Number: US-INSYS THERAPEUTICS, INC-INS201507-000297

PATIENT
  Sex: Female
  Weight: 52.16 kg

DRUGS (8)
  1. CITALOPRAM [Concomitant]
     Active Substance: CITALOPRAM HYDROBROMIDE
  2. OXYCODONE [Concomitant]
     Active Substance: OXYCODONE
  3. TAMOXIFEN [Concomitant]
     Active Substance: TAMOXIFEN
     Indication: BREAST CANCER
  4. GABAPENTIN. [Concomitant]
     Active Substance: GABAPENTIN
  5. SUBSYS [Suspect]
     Active Substance: FENTANYL
     Indication: BREAKTHROUGH PAIN
  6. AMLODIPINE BESYLATE. [Concomitant]
     Active Substance: AMLODIPINE BESYLATE
  7. SUBSYS [Suspect]
     Active Substance: FENTANYL
     Indication: PAIN
  8. AUTRIN [Concomitant]
     Indication: LOSS OF CONSCIOUSNESS

REACTIONS (2)
  - Product quality issue [Unknown]
  - Application site pain [Not Recovered/Not Resolved]
